FAERS Safety Report 5058086-X (Version None)
Quarter: 2006Q3

REPORT INFORMATION
  Report Type: 
  Country: None (occurrence: None)
  Receive Date: 20060721
  Receipt Date: 20060711
  Transmission Date: 20061208
  Serious: Yes (Life-Threatening)
  Sender: FDA-Public Use
  Company Number: HR-ROCHE-454960

PATIENT
  Age: 73 Year
  Sex: Male

DRUGS (1)
  1. XELODA [Suspect]
     Indication: RECTOSIGMOID CANCER
     Route: 048
     Dates: start: 20060604

REACTIONS (5)
  - ABDOMINAL PAIN [None]
  - ELECTROCARDIOGRAM CHANGE [None]
  - INFARCTION [None]
  - NAUSEA [None]
  - TROPONIN INCREASED [None]
